FAERS Safety Report 18109766 (Version 2)
Quarter: 2020Q3

REPORT INFORMATION
  Report Type: Spontaneous
  Country: US (occurrence: US)
  Receive Date: 20200804
  Receipt Date: 20200807
  Transmission Date: 20201103
  Serious: Yes (Death, Other)
  Sender: FDA-Public Use
  Company Number: US-PURDUE-USA-2020-0160458

PATIENT
  Age: 48 Year
  Sex: Male

DRUGS (3)
  1. IBUPROFEN. [Suspect]
     Active Substance: IBUPROFEN
     Indication: PRODUCT USED FOR UNKNOWN INDICATION
     Dosage: UNKNOWN
     Route: 048
  2. HYDROCODONE BITARTRATE AND ACETAMINOPHEN [Suspect]
     Active Substance: ACETAMINOPHEN\HYDROCODONE BITARTRATE
     Indication: MUSCULOSKELETAL DISCOMFORT
     Dosage: 325 MG, UNK
     Route: 048
     Dates: start: 201110, end: 201903
  3. HYDROCODONE BITARTRATE AND ACETAMINOPHEN [Suspect]
     Active Substance: ACETAMINOPHEN\HYDROCODONE BITARTRATE
     Indication: PRODUCT USED FOR UNKNOWN INDICATION
     Dosage: 10?325 MG
     Route: 048

REACTIONS (9)
  - Depression [Unknown]
  - Decreased appetite [Unknown]
  - Disorientation [Unknown]
  - Confusional state [Unknown]
  - Mood swings [Unknown]
  - Impaired work ability [Unknown]
  - Death [Fatal]
  - Drug dependence [Unknown]
  - Amnesia [Unknown]

NARRATIVE: CASE EVENT DATE: 201909
